FAERS Safety Report 5180913-6 (Version None)
Quarter: 2006Q4

REPORT INFORMATION
  Report Type: 
  Country: None (occurrence: None)
  Receive Date: 20061218
  Receipt Date: 20061218
  Transmission Date: 20070319
  Serious: Yes (Life-Threatening)
  Sender: FDA-Public Use
  Company Number: None

PATIENT
  Age: 35 Year
  Sex: Male
  Weight: 97.0698 kg

DRUGS (15)
  1. FERRLECIT [Suspect]
     Indication: ANAEMIA
     Dosage: 125MG DAILY IV
     Route: 042
     Dates: start: 20060721, end: 20060722
  2. PROMETHAZINE [Concomitant]
  3. ONDANSETRON [Concomitant]
  4. PROPOXYPHENE HCL AND ACETAMINOPHEN [Concomitant]
  5. NYSTATIN [Concomitant]
  6. DYCLONINE/GLYCERIN [Concomitant]
  7. KALETRA [Concomitant]
  8. EMTRICITABINE/TENOVOFIR [Concomitant]
  9. CEFEPIME [Concomitant]
  10. ACETAMINOPHEN [Concomitant]
  11. PREDNISONE [Concomitant]
  12. OXYCODONE HCL EXTENDED-RELEASE [Concomitant]
  13. HYDROMORPHONE HCL [Concomitant]
  14. VANCOMYCIN [Concomitant]
  15. EPOGEN [Concomitant]

REACTIONS (2)
  - INFUSION RELATED REACTION [None]
  - THROAT TIGHTNESS [None]
